FAERS Safety Report 22244884 (Version 2)
Quarter: 2023Q2

REPORT INFORMATION
  Report Type: Spontaneous
  Country: US (occurrence: US)
  Receive Date: 20230424
  Receipt Date: 20230526
  Transmission Date: 20230722
  Serious: Yes (Hospitalization, Other)
  Sender: FDA-Public Use
  Company Number: US-BRISTOL-MYERS SQUIBB COMPANY-2023-055036

PATIENT
  Age: 72 Year
  Sex: Male

DRUGS (2)
  1. POMALYST [Suspect]
     Active Substance: POMALIDOMIDE
     Indication: Plasma cell myeloma
     Dosage: TAKE 1 CAPSULE BY MOUTH EVERY OTHER DAY
     Route: 048
     Dates: end: 20230518
  2. POMALYST [Suspect]
     Active Substance: POMALIDOMIDE
     Indication: Stem cell transplant

REACTIONS (3)
  - Pelvic fracture [Recovered/Resolved]
  - Plasma cell myeloma [Not Recovered/Not Resolved]
  - Off label use [Unknown]
